FAERS Safety Report 8142549-4 (Version None)
Quarter: 2012Q1

REPORT INFORMATION
  Report Type: 
  Country: None (occurrence: None)
  Receive Date: 20120216
  Receipt Date: 20120202
  Transmission Date: 20120608
  Serious: Yes (Other)
  Sender: FDA-Public Use
  Company Number: BR-WATSON-2012-02096

PATIENT
  Age: 23 Year
  Sex: Female

DRUGS (4)
  1. RISPERIDONE [Suspect]
     Indication: BIPOLAR DISORDER
     Dosage: UNK
     Route: 065
  2. HALOPERIDOL [Suspect]
     Indication: BIPOLAR DISORDER
  3. LITHIUM CARBONATE [Suspect]
     Indication: BIPOLAR DISORDER
     Dosage: UNK
     Route: 065
  4. CLONAZEPAM [Suspect]
     Indication: BIPOLAR DISORDER
     Dosage: UNK
     Route: 065

REACTIONS (1)
  - NEUROLEPTIC MALIGNANT SYNDROME [None]
